FAERS Safety Report 10307126 (Version 2)
Quarter: 2014Q3

REPORT INFORMATION
  Report Type: Spontaneous
  Country: TR (occurrence: TR)
  Receive Date: 20140716
  Receipt Date: 20140728
  Transmission Date: 20150326
  Serious: Yes (Other)
  Sender: FDA-Public Use
  Company Number: TR-AMGEN INC.-TURSP2014052533

PATIENT
  Age: 44 Year
  Sex: Female

DRUGS (2)
  1. ENBREL [Suspect]
     Active Substance: ETANERCEPT
     Indication: ANKYLOSING SPONDYLITIS
     Dosage: 50 MG, WEEKLY
     Route: 058
     Dates: start: 20130907, end: 201401
  2. SALAZOPYRIN [Concomitant]
     Active Substance: SULFASALAZINE
     Dosage: 6X/DAILY

REACTIONS (5)
  - Vascular rupture [Unknown]
  - Thyroid cancer [Not Recovered/Not Resolved]
  - Drug ineffective [Unknown]
  - Procedural haemorrhage [Unknown]
  - Pain [Unknown]

NARRATIVE: CASE EVENT DATE: 201401
